FAERS Safety Report 7973731-4 (Version None)
Quarter: 2011Q4

REPORT INFORMATION
  Report Type: 
  Country: None (occurrence: None)
  Receive Date: 20111213
  Receipt Date: 20111213
  Transmission Date: 20120403
  Serious: Yes (Other)
  Sender: FDA-Public Use
  Company Number: None

PATIENT
  Age: 47 Year
  Sex: Female
  Weight: 75.296 kg

DRUGS (1)
  1. MOVEFREE GLUCOSAMINE/CHONDROITIN [Suspect]

REACTIONS (4)
  - APPENDICITIS [None]
  - HEPATIC ENZYME INCREASED [None]
  - LIVER INJURY [None]
  - ABDOMINAL PAIN UPPER [None]
